FAERS Safety Report 6051922-X (Version None)
Quarter: 2009Q1

REPORT INFORMATION
  Report Type: 
  Country: None (occurrence: None)
  Receive Date: 20090121
  Receipt Date: 20090121
  Transmission Date: 20090719
  Serious: No
  Sender: FDA-Public Use
  Company Number: None

PATIENT
  Age: 53 Year
  Sex: Male

DRUGS (1)
  1. OPTIRAY 350 [Suspect]
     Indication: COMPUTERISED TOMOGRAM
     Dosage: 100ML X1 IV
     Route: 042
     Dates: start: 20080812

REACTIONS (3)
  - ILL-DEFINED DISORDER [None]
  - THROAT IRRITATION [None]
  - WHEEZING [None]
